FAERS Safety Report 5483618-7 (Version None)
Quarter: 2007Q4

REPORT INFORMATION
  Report Type: 
  Country: None (occurrence: None)
  Receive Date: 20071009
  Receipt Date: 20071002
  Transmission Date: 20080405
  Serious: Yes (Death)
  Sender: FDA-Public Use
  Company Number: 163-21880-07061689

PATIENT
  Age: 80 Year
  Sex: 0

DRUGS (2)
  1. REVLIMID [Suspect]
     Indication: MYELODYSPLASTIC SYNDROME
     Dosage: 5 MG, QOD X 21 DAYS, 1 WEEK OFF, ORAL, 5 MG, QD X 21 DAYS, ORAM
     Route: 048
     Dates: start: 20070403, end: 20070101
  2. REVLIMID [Suspect]
     Indication: MYELODYSPLASTIC SYNDROME
     Dosage: 5 MG, QOD X 21 DAYS, 1 WEEK OFF, ORAL, 5 MG, QD X 21 DAYS, ORAM
     Route: 048
     Dates: end: 20070501

REACTIONS (4)
  - ACUTE LEUKAEMIA [None]
  - DISEASE PROGRESSION [None]
  - FEBRILE NEUTROPENIA [None]
  - MYELODYSPLASTIC SYNDROME [None]
